FAERS Safety Report 5619079-4 (Version None)
Quarter: 2008Q1

REPORT INFORMATION
  Report Type: 
  Country: None (occurrence: None)
  Receive Date: 20080207
  Receipt Date: 20080128
  Transmission Date: 20080703
  Serious: Yes (Death)
  Sender: FDA-Public Use
  Company Number: JP-GENENTECH-254159

PATIENT
  Age: 75 Year
  Sex: Female

DRUGS (1)
  1. ACTIVASE [Suspect]
     Indication: CEREBRAL INFARCTION
     Dosage: 16.5 ML, UNK
     Route: 042
     Dates: start: 20080104

REACTIONS (1)
  - INTRA-ABDOMINAL HAEMORRHAGE [None]
